FAERS Safety Report 11608334 (Version 1)
Quarter: 2015Q4

REPORT INFORMATION
  Report Type: Spontaneous
  Country: US (occurrence: US)
  Receive Date: 20151007
  Receipt Date: 20151007
  Transmission Date: 20160304
  Serious: Yes (Hospitalization)
  Sender: FDA-Public Use
  Company Number: US-BAYER-2015-426941

PATIENT
  Age: 57 Year
  Sex: Female

DRUGS (1)
  1. BETASERON [Suspect]
     Active Substance: INTERFERON BETA-1B
     Indication: MULTIPLE SCLEROSIS
     Dosage: .25 MG, QOD
     Route: 058
     Dates: start: 1993

REACTIONS (4)
  - Pyrexia [None]
  - Decubitus ulcer [None]
  - Movement disorder [None]
  - Delirium febrile [None]
